FAERS Safety Report 9228263 (Version 4)
Quarter: 2013Q3

REPORT INFORMATION
  Report Type: Report from Study
  Country: JP (occurrence: JP)
  Receive Date: 20130412
  Receipt Date: 20130715
  Transmission Date: 20140515
  Serious: Yes (Death, Hospitalization, Other)
  Sender: FDA-Public Use
  Company Number: JP-GENZYME-THYM-1003749

PATIENT
  Age: 57 Year
  Sex: Male
  Weight: 57 kg

DRUGS (42)
  1. THYMOGLOBULIN [Suspect]
     Indication: BONE MARROW CONDITIONING REGIMEN
     Dosage: 30 MG, QD
     Route: 065
     Dates: start: 20110624, end: 20110624
  2. THYMOGLOBULIN [Suspect]
     Indication: ACUTE GRAFT VERSUS HOST DISEASE
     Dosage: 60 MG, QD
     Route: 065
     Dates: start: 20110625, end: 20110626
  3. THYMOGLOBULIN [Suspect]
     Dosage: 500 MG, QD
     Route: 065
     Dates: start: 20110707, end: 20110707
  4. THYMOGLOBULIN [Suspect]
     Dosage: 100 MG, QD
     Route: 065
     Dates: start: 20110708, end: 20110710
  5. THYMOGLOBULIN [Suspect]
     Dosage: 100 MG, QD
     Route: 065
     Dates: start: 20110712, end: 20110712
  6. BUSULFAN [Concomitant]
     Indication: BONE MARROW CONDITIONING REGIMEN
     Dosage: UNK
     Route: 065
     Dates: start: 20110620, end: 20110623
  7. FLUDARABINE PHOSPHATE [Concomitant]
     Indication: BONE MARROW CONDITIONING REGIMEN
     Dosage: UNK
     Route: 065
     Dates: start: 20110624, end: 20110625
  8. TACROLIMUS [Concomitant]
     Indication: PROPHYLAXIS AGAINST GRAFT VERSUS HOST DISEASE
     Dosage: UNK
     Route: 065
     Dates: start: 20110624, end: 20110625
  9. TACROLIMUS [Concomitant]
     Indication: PRODUCT USED FOR UNKNOWN INDICATION
     Dosage: UNK
     Route: 065
     Dates: start: 20110703, end: 201107
  10. TACROLIMUS [Concomitant]
     Dosage: UNK
     Route: 065
     Dates: start: 20110707, end: 20110903
  11. METHYLPREDNISOLONE SODIUM SUCCINATE [Concomitant]
     Indication: PRODUCT USED FOR UNKNOWN INDICATION
     Dosage: UNK
     Route: 065
     Dates: start: 20110707, end: 20110819
  12. MEROPENEM [Concomitant]
     Indication: INFECTION PROPHYLAXIS
     Dosage: UNK
     Route: 065
     Dates: start: 20110707, end: 20110729
  13. VANCOMYCIN HYDROCHLORIDE [Concomitant]
     Indication: INFECTION PROPHYLAXIS
     Dosage: UNK
     Route: 065
     Dates: start: 20110707, end: 20110714
  14. DANAPAROID SODIUM [Concomitant]
     Indication: PROPHYLAXIS
     Dosage: UNK
     Route: 065
     Dates: start: 20110708, end: 20110714
  15. FOSCARNET SODIUM [Concomitant]
     Indication: INFECTION PROPHYLAXIS
     Dosage: UNK
     Route: 065
     Dates: start: 20110709, end: 20110819
  16. LANSOPRAZOLE [Concomitant]
     Indication: PROPHYLAXIS AGAINST GASTROINTESTINAL ULCER
     Dosage: UNK
     Route: 065
     Dates: start: 20110708, end: 20110912
  17. FREEZE-DRIED PEPSIN TREATED HUMAN NORMAL IMMUNOGLOBULIN [Concomitant]
     Indication: INFECTION PROPHYLAXIS
     Dosage: UNK
     Route: 065
     Dates: start: 20110708, end: 20110812
  18. LEVOFLOXACIN [Concomitant]
     Indication: INFECTION PROPHYLAXIS
     Dosage: UNK
     Route: 065
     Dates: start: 20110707, end: 20110813
  19. ACICLOVIR [Concomitant]
     Indication: INFECTION PROPHYLAXIS
     Dosage: UNK
     Route: 065
     Dates: start: 20110707, end: 20110827
  20. URSODEOXYCHOLIC ACID [Concomitant]
     Indication: PROPHYLAXIS
     Dosage: UNK
     Route: 065
     Dates: start: 20110707, end: 20110827
  21. CANDESARTAN CILEXETIL [Concomitant]
     Indication: PRODUCT USED FOR UNKNOWN INDICATION
     Dosage: UNK
     Route: 065
     Dates: start: 20110707, end: 20110723
  22. MONOAMMONIUM GLYCYRRHIZINATE_GLYCINE_L-CYSTEINE COMBINED [Concomitant]
     Indication: HEPATIC FUNCTION ABNORMAL
     Dosage: UNK
     Route: 065
     Dates: start: 20110710, end: 20110729
  23. CARBAZOCHROME SODIUM SULFONATE [Concomitant]
     Indication: HAEMORRHAGE PROPHYLAXIS
     Dosage: UNK
     Route: 065
     Dates: start: 20110716, end: 20110819
  24. TRANEXAMIC ACID [Concomitant]
     Indication: HAEMORRHAGE PROPHYLAXIS
     Dosage: UNK
     Route: 065
     Dates: start: 20110716, end: 20110819
  25. MICAFUNGIN SODIUM [Concomitant]
     Indication: INFECTION PROPHYLAXIS
     Dosage: UNK
     Route: 065
     Dates: start: 20110722, end: 20110902
  26. TEICOPLANIN [Concomitant]
     Indication: INFECTION PROPHYLAXIS
     Dosage: UNK
     Route: 065
     Dates: start: 20110722, end: 20110808
  27. PREDNISOLONE [Concomitant]
     Indication: PRODUCT USED FOR UNKNOWN INDICATION
     Dosage: UNK
     Route: 065
     Dates: start: 20110707, end: 20110912
  28. GANCICLOVIR [Concomitant]
     Indication: INFECTION PROPHYLAXIS
     Dosage: UNK
     Route: 065
     Dates: start: 20110825, end: 20110902
  29. ITRACONAZOLE [Concomitant]
     Indication: INFECTION PROPHYLAXIS
     Dosage: UNK
     Route: 065
     Dates: start: 20110903, end: 20110912
  30. CEFTRIAXONE SODIUM [Concomitant]
     Indication: INFECTION PROPHYLAXIS
     Dosage: UNK
     Route: 065
     Dates: start: 20110910, end: 20110912
  31. CEFOZOPRAN HYDROCHLORIDE [Concomitant]
     Indication: INFECTION PROPHYLAXIS
     Dosage: UNK
     Route: 065
     Dates: start: 20110730, end: 20110808
  32. ELCATONIN [Concomitant]
     Indication: OSTEOPOROSIS PROPHYLAXIS
     Dosage: UNK
     Route: 065
     Dates: start: 20110818, end: 20110820
  33. PIPERACILLIN SODIUM W [Concomitant]
     Indication: INFECTION PROPHYLAXIS
     Dosage: UNK
     Route: 065
     Dates: start: 20110820, end: 20110826
  34. CONCENTRATED HUMAN BLOOD PLATELET [Concomitant]
     Indication: ACUTE MYELOID LEUKAEMIA
     Dosage: UNK
     Route: 065
     Dates: start: 20110707, end: 20110911
  35. CONCENTRATED HUMAN RED BLOOD CELLS [Concomitant]
     Indication: ACUTE MYELOID LEUKAEMIA
     Dosage: UNK
     Route: 065
     Dates: start: 20110707, end: 20110909
  36. FRESH-FROZEN HUMAN PLASMA [Concomitant]
     Indication: ACUTE MYELOID LEUKAEMIA
     Dosage: UNK
     Route: 065
     Dates: start: 20110712, end: 20110806
  37. VFEND [Concomitant]
     Indication: INFECTION PROPHYLAXIS
     Dosage: UNK
     Route: 065
     Dates: start: 20110624, end: 20110701
  38. CRAVIT [Concomitant]
     Indication: INFECTION PROPHYLAXIS
     Dosage: UNK
     Route: 065
  39. MEROPEN [Concomitant]
     Indication: INFECTION PROPHYLAXIS
     Dosage: UNK
     Route: 065
     Dates: start: 20110628
  40. FIRSTCIN [Concomitant]
     Indication: INFECTION PROPHYLAXIS
     Dosage: UNK
     Route: 065
     Dates: start: 20110628
  41. VANCOMYCIN [Concomitant]
     Indication: INFECTION PROPHYLAXIS
     Dosage: UNK
     Route: 065
     Dates: start: 20110628
  42. ZOVIRAX [Concomitant]
     Indication: INFECTION PROPHYLAXIS
     Dosage: UNK
     Route: 065
     Dates: start: 20110626

REACTIONS (3)
  - Acute graft versus host disease in skin [Unknown]
  - Acute myeloid leukaemia recurrent [Fatal]
  - Graft versus host disease [Recovered/Resolved]
